FAERS Safety Report 23668318 (Version 1)
Quarter: 2024Q1

REPORT INFORMATION
  Report Type: Spontaneous
  Country: US (occurrence: None)
  Receive Date: 20240322
  Receipt Date: 20240322
  Transmission Date: 20240410
  Serious: No
  Sender: FDA-Public Use
  Company Number: None

PATIENT
  Age: 26 Year
  Sex: Female
  Weight: 63 kg

DRUGS (7)
  1. MIRTAZAPINE [Suspect]
     Active Substance: MIRTAZAPINE
     Indication: COVID-19
     Dosage: OTHER QUANTITY : 1 TABLET(S);?FREQUENCY : AT BEDTIME;?
     Route: 048
     Dates: start: 20240308, end: 20240314
  2. MONTELUKAST [Concomitant]
     Active Substance: MONTELUKAST SODIUM
  3. portia birth control [Concomitant]
  4. womens 1 a day [Concomitant]
  5. MAGNESIUM [Concomitant]
     Active Substance: MAGNESIUM
  6. COENZYME Q10 [Concomitant]
     Active Substance: DIETARY SUPPLEMENT\UBIDECARENONE
  7. VITAMIN B2 [Concomitant]
     Active Substance: RIBOFLAVIN

REACTIONS (3)
  - Nervousness [None]
  - Product dose omission in error [None]
  - Anxiety [None]

NARRATIVE: CASE EVENT DATE: 20240315
